FAERS Safety Report 10731572 (Version 2)
Quarter: 2015Q1

REPORT INFORMATION
  Report Type: Report from Study
  Country: US (occurrence: US)
  Receive Date: 20150123
  Receipt Date: 20150210
  Transmission Date: 20150721
  Serious: Yes (Other)
  Sender: FDA-Public Use
  Company Number: US-ROCHE-1523624

PATIENT
  Sex: Female
  Weight: 80.36 kg

DRUGS (1)
  1. RANIBIZUMAB [Suspect]
     Active Substance: RANIBIZUMAB
     Indication: AGE-RELATED MACULAR DEGENERATION
     Dosage: IN LEFT EYE
     Route: 050
     Dates: start: 20140710

REACTIONS (8)
  - Eye pain [Unknown]
  - Blindness [Unknown]
  - Visual impairment [Unknown]
  - Visual acuity reduced [Recovered/Resolved]
  - Lacrimation increased [Unknown]
  - Eye discharge [Unknown]
  - Visual acuity reduced [Recovered/Resolved]
  - Metamorphopsia [Unknown]
